FAERS Safety Report 5808100-6 (Version None)
Quarter: 2008Q3

REPORT INFORMATION
  Report Type: 
  Country: None (occurrence: None)
  Receive Date: 20080708
  Receipt Date: 20080624
  Transmission Date: 20090109
  Serious: Yes (Hospitalization)
  Sender: FDA-Public Use
  Company Number: 08P-028-0459759-00

PATIENT
  Age: 5 Month
  Sex: Female

DRUGS (3)
  1. SYNAGIS [Suspect]
     Indication: ANTIVIRAL PROPHYLAXIS
     Dosage: (56 MG), INTRAMUSCULAR, (60 MG) INTRAMUSCULAR
     Route: 030
     Dates: start: 20071219, end: 20071219
  2. SYNAGIS [Suspect]
     Indication: ANTIVIRAL PROPHYLAXIS
     Dosage: (56 MG), INTRAMUSCULAR, (60 MG) INTRAMUSCULAR
     Route: 030
     Dates: start: 20080108, end: 20080108
  3. ORNOF [Concomitant]

REACTIONS (12)
  - BLOOD CREATININE DECREASED [None]
  - BODY TEMPERATURE INCREASED [None]
  - COUGH [None]
  - DIARRHOEA [None]
  - FEEDING DISORDER OF INFANCY OR EARLY CHILDHOOD [None]
  - HAEMOGLOBIN DECREASED [None]
  - LETHARGY [None]
  - MALAISE [None]
  - NASAL CONGESTION [None]
  - PALLOR [None]
  - RHINITIS [None]
  - VOMITING [None]
